FAERS Safety Report 15315222 (Version 1)
Quarter: 2018Q3

REPORT INFORMATION
  Report Type: Spontaneous
  Country: US (occurrence: US)
  Receive Date: 20180815
  Receipt Date: 20180815
  Transmission Date: 20181010
  Serious: Yes (Death)
  Sender: FDA-Public Use
  Company Number: None

PATIENT
  Age: 82 Year
  Sex: Female
  Weight: 54 kg

DRUGS (17)
  1. CLOPIDOGREL [Concomitant]
     Active Substance: CLOPIDOGREL BISULFATE
  2. FUROSEMIDE. [Concomitant]
     Active Substance: FUROSEMIDE
  3. LEVOTHYROXINE. [Concomitant]
     Active Substance: LEVOTHYROXINE
  4. JANUMET [Concomitant]
     Active Substance: METFORMIN HYDROCHLORIDE\SITAGLIPTIN PHOSPHATE
  5. MULTIVITAMIN [Concomitant]
     Active Substance: VITAMINS
  6. VITAMIN D3 [Concomitant]
     Active Substance: CHOLECALCIFEROL
  7. AMLODIPINE [Concomitant]
     Active Substance: AMLODIPINE BESYLATE
  8. POTASSIUM [Concomitant]
     Active Substance: POTASSIUM
  9. XIFAXAN [Suspect]
     Active Substance: RIFAXIMIN
     Indication: DYSPEPSIA
     Dosage: ?          QUANTITY:1 TABLET(S);?
     Route: 048
  10. LEVEMIR [Concomitant]
     Active Substance: INSULIN DETEMIR
  11. ATORVASTATIN [Concomitant]
     Active Substance: ATORVASTATIN
  12. XIFAXAN [Suspect]
     Active Substance: RIFAXIMIN
     Indication: DIARRHOEA
     Dosage: ?          QUANTITY:1 TABLET(S);?
     Route: 048
  13. CARVEDILOL. [Concomitant]
     Active Substance: CARVEDILOL
  14. FISH OIL [Concomitant]
     Active Substance: FISH OIL
  15. XIFAXAN [Suspect]
     Active Substance: RIFAXIMIN
     Indication: FLATULENCE
     Dosage: ?          QUANTITY:1 TABLET(S);?
     Route: 048
  16. RAMIPRIL. [Concomitant]
     Active Substance: RAMIPRIL
  17. ASPIRIN. [Concomitant]
     Active Substance: ASPIRIN

REACTIONS (3)
  - Diarrhoea [None]
  - Pruritus [None]
  - Dyspepsia [None]

NARRATIVE: CASE EVENT DATE: 20180814
